FAERS Safety Report 8270503-0 (Version None)
Quarter: 2012Q2

REPORT INFORMATION
  Report Type: 
  Country: None (occurrence: None)
  Receive Date: 20120410
  Receipt Date: 20120402
  Transmission Date: 20120825
  Serious: Yes (Hospitalization)
  Sender: FDA-Public Use
  Company Number: US-BAYER-2011-123803

PATIENT
  Age: 21 Year
  Sex: Female

DRUGS (7)
  1. BEYAZ [Suspect]
     Dosage: UNK
     Route: 048
     Dates: end: 20110218
  2. PERCOCET [Concomitant]
  3. YAZ [Suspect]
     Dosage: UNK
     Route: 048
     Dates: start: 20091001, end: 20110201
  4. ACETAMINOPHEN [Concomitant]
  5. ARIXTRA [Concomitant]
  6. AUGMENTIN '125' [Concomitant]
     Dosage: UNK
     Route: 048
     Dates: end: 20110201
  7. YASMIN [Suspect]
     Dosage: UNK
     Route: 048
     Dates: start: 20091001, end: 20110201

REACTIONS (7)
  - FEAR [None]
  - PULMONARY EMBOLISM [None]
  - INJURY [None]
  - PSYCHOLOGICAL TRAUMA [None]
  - PAIN [None]
  - ANXIETY [None]
  - EMOTIONAL DISTRESS [None]
